FAERS Safety Report 6435368-8 (Version None)
Quarter: 2009Q4

REPORT INFORMATION
  Report Type: 
  Country: None (occurrence: None)
  Receive Date: 20091110
  Receipt Date: 20091028
  Transmission Date: 20100525
  Serious: Yes (Life-Threatening, Hospitalization)
  Sender: FDA-Public Use
  Company Number: JP-MERCK-0906USA03806

PATIENT
  Age: 78 Year
  Sex: Female
  Weight: 41 kg

DRUGS (22)
  1. FOSAMAX [Suspect]
     Indication: OSTEOPOROSIS
     Route: 048
     Dates: start: 20081027, end: 20090525
  2. LANSOPRAZOLE [Suspect]
     Indication: GASTRIC ULCER
     Route: 048
     Dates: start: 20081209, end: 20090202
  3. LANSOPRAZOLE [Suspect]
     Route: 048
     Dates: start: 20090203, end: 20090427
  4. LANSOPRAZOLE [Suspect]
     Indication: REFLUX OESOPHAGITIS
     Route: 048
     Dates: start: 20081209, end: 20090202
  5. LANSOPRAZOLE [Suspect]
     Route: 048
     Dates: start: 20090203, end: 20090427
  6. AMLODIPINE [Concomitant]
     Indication: HYPERTENSION
     Route: 048
     Dates: start: 20080425
  7. EVISTA [Suspect]
     Indication: OSTEOPOROSIS
     Route: 048
     Dates: start: 20080723, end: 20081027
  8. VOLTAREN [Suspect]
     Indication: OSTEOARTHRITIS
     Route: 048
     Dates: start: 20080723, end: 20081209
  9. MOHRUS [Concomitant]
     Indication: BACK PAIN
     Route: 061
     Dates: start: 20080701
  10. MOHRUS [Concomitant]
     Indication: OSTEOARTHRITIS
     Route: 061
     Dates: start: 20080701
  11. HIRUDOID [Concomitant]
     Indication: ASTEATOSIS
     Route: 061
     Dates: start: 20080801
  12. HYTHIOL [Concomitant]
     Indication: NASOPHARYNGITIS
     Route: 048
     Dates: start: 20080901, end: 20080901
  13. CINAL [Concomitant]
     Indication: NASOPHARYNGITIS
     Route: 048
     Dates: start: 20080901, end: 20080901
  14. DEQUALINIUM CHLORIDE [Concomitant]
     Indication: NASOPHARYNGITIS
     Route: 048
     Dates: start: 20080901
  15. KAKKON-TO [Concomitant]
     Indication: NASOPHARYNGITIS
     Route: 048
     Dates: start: 20081201, end: 20081201
  16. KAKKON-TO [Concomitant]
     Route: 048
     Dates: start: 20081001, end: 20081001
  17. KAKKON-TO [Concomitant]
     Route: 048
     Dates: start: 20090201, end: 20090201
  18. KAKKON-TO [Concomitant]
     Route: 048
     Dates: start: 20090501, end: 20090501
  19. KAKKON-TO [Concomitant]
     Route: 048
     Dates: start: 20081101, end: 20081101
  20. SELBEX [Concomitant]
     Indication: NASOPHARYNGITIS
     Route: 048
     Dates: start: 20081001, end: 20081201
  21. PROPETO [Concomitant]
     Route: 061
     Dates: start: 20081101
  22. MARZULENE-S [Concomitant]
     Route: 048
     Dates: start: 20081201, end: 20090101

REACTIONS (2)
  - GASTRIC ULCER [None]
  - MYELODYSPLASTIC SYNDROME [None]
